FAERS Safety Report 4342081-X (Version None)
Quarter: 2004Q2

REPORT INFORMATION
  Report Type: 
  Country: None (occurrence: None)
  Receive Date: 20040420
  Receipt Date: 20040412
  Transmission Date: 20050107
  Serious: Yes (Hospitalization, Other)
  Sender: FDA-Public Use
  Company Number: US-MERCK-0404USA01286

PATIENT
  Age: 95 Year
  Sex: Female

DRUGS (5)
  1. DIGOXIN [Concomitant]
     Route: 065
  2. LASIX [Concomitant]
     Route: 065
  3. POTASSIUM (UNSPECIFIED) [Concomitant]
     Route: 065
  4. VIOXX [Suspect]
     Indication: ARTHRITIS
     Route: 048
     Dates: end: 20040401
  5. COUMADIN [Concomitant]
     Route: 065

REACTIONS (2)
  - CARDIAC FAILURE CONGESTIVE [None]
  - RASH MACULO-PAPULAR [None]
